FAERS Safety Report 7756961-6 (Version None)
Quarter: 2011Q3

REPORT INFORMATION
  Report Type: 
  Country: None (occurrence: None)
  Receive Date: 20110916
  Receipt Date: 20110916
  Transmission Date: 20111222
  Serious: No
  Sender: FDA-Public Use
  Company Number: None

PATIENT
  Sex: Female

DRUGS (1)
  1. VENLAFAXINE HCL [Suspect]
     Indication: DEPRESSION
     Dosage: 225MG
     Route: 048
     Dates: start: 20110823, end: 20110915

REACTIONS (4)
  - PRODUCT SUBSTITUTION ISSUE [None]
  - CRYING [None]
  - IRRITABILITY [None]
  - EMOTIONAL DISTRESS [None]
